FAERS Safety Report 11849523 (Version 14)
Quarter: 2017Q1

REPORT INFORMATION
  Report Type: Spontaneous
  Country: US (occurrence: US)
  Receive Date: 20151218
  Receipt Date: 20170221
  Transmission Date: 20170428
  Serious: Yes (Death, Hospitalization)
  Sender: FDA-Public Use
  Company Number: US-ACTELION-A-US2015-128842

PATIENT
  Age: 61 Year
  Sex: Female

DRUGS (5)
  1. REVATIO [Concomitant]
     Active Substance: SILDENAFIL CITRATE
  2. COUMADIN [Concomitant]
     Active Substance: WARFARIN SODIUM
  3. VENTAVIS [Suspect]
     Active Substance: ILOPROST
     Indication: PULMONARY ARTERIAL HYPERTENSION
     Dosage: 5 MCG, 6-9 X/DAILY
     Route: 055
     Dates: start: 20150218
  4. OPSUMIT [Suspect]
     Active Substance: MACITENTAN
     Indication: PULMONARY ARTERIAL HYPERTENSION
     Dosage: 10 MG, QD
     Route: 048
     Dates: start: 20150302
  5. AMLODIPINE [Concomitant]
     Active Substance: AMLODIPINE BESYLATE

REACTIONS (9)
  - Cardiac failure congestive [Unknown]
  - Device failure [Unknown]
  - Death [Fatal]
  - Right ventricular failure [Unknown]
  - Drug dose omission [Not Recovered/Not Resolved]
  - Ascites [Unknown]
  - Dyspnoea [Unknown]
  - Oedema peripheral [Unknown]
  - Fluid retention [Unknown]

NARRATIVE: CASE EVENT DATE: 20160517
